FAERS Safety Report 20393497 (Version 1)
Quarter: 2022Q1

REPORT INFORMATION
  Report Type: Spontaneous
  Country: US (occurrence: US)
  Receive Date: 20220128
  Receipt Date: 20220128
  Transmission Date: 20220423
  Serious: Yes (Hospitalization)
  Sender: FDA-Public Use
  Company Number: US-Sprout Pharmaceuticals, Inc.-2022SP000029

PATIENT
  Sex: Female

DRUGS (1)
  1. ADDYI [Suspect]
     Active Substance: FLIBANSERIN
     Route: 015
     Dates: end: 202105

REACTIONS (2)
  - Neonatal respiratory distress syndrome [Recovered/Resolved]
  - Foetal exposure during pregnancy [Recovered/Resolved]

NARRATIVE: CASE EVENT DATE: 20210101
